FAERS Safety Report 5749183-1 (Version None)
Quarter: 2008Q2

REPORT INFORMATION
  Report Type: 
  Country: None (occurrence: None)
  Receive Date: 20080522
  Receipt Date: 20080508
  Transmission Date: 20081010
  Serious: Yes (Disabling, Other)
  Sender: FDA-Public Use
  Company Number: 2008EU000768

PATIENT
  Sex: Male

DRUGS (2)
  1. TACROLIMUS [Suspect]
     Indication: LUNG TRANSPLANT
     Dosage: /D, ORAL
     Route: 048
  2. ETHAMBUTOL HYDROCHLORIDE [Concomitant]

REACTIONS (2)
  - NEUROPATHY PERIPHERAL [None]
  - VISUAL FIELD DEFECT [None]
